FAERS Safety Report 9422769 (Version 1)
Quarter: 2013Q3

REPORT INFORMATION
  Report Type: Spontaneous
  Country: US (occurrence: US)
  Receive Date: 20130726
  Receipt Date: 20130726
  Transmission Date: 20140515
  Serious: No
  Sender: FDA-Public Use
  Company Number: US-MYLANLABS-2012S1020631

PATIENT
  Age: 59 Year
  Sex: Male

DRUGS (1)
  1. HALOPERIDOL TABLETS, USP [Suspect]
     Indication: TOURETTE^S DISORDER
     Route: 048
     Dates: start: 201202

REACTIONS (2)
  - Headache [Recovered/Resolved]
  - Fatigue [Recovered/Resolved]
